FAERS Safety Report 26075269 (Version 1)
Quarter: 2025Q4

REPORT INFORMATION
  Report Type: Spontaneous
  Country: US (occurrence: US)
  Receive Date: 20251121
  Receipt Date: 20251121
  Transmission Date: 20260118
  Serious: Yes (Other)
  Sender: NOVO NORDISK
  Company Number: US-NOVOPROD-1564895

PATIENT
  Age: 55 Year
  Sex: Female

DRUGS (3)
  1. RYBELSUS [Suspect]
     Active Substance: SEMAGLUTIDE
     Indication: Glucose tolerance impaired
     Dosage: UNK
  2. UBLITUXIMAB [Suspect]
     Active Substance: UBLITUXIMAB
     Dosage: 450 MG
     Route: 042
     Dates: start: 20241216
  3. UBLITUXIMAB [Suspect]
     Active Substance: UBLITUXIMAB
     Indication: Relapsing multiple sclerosis
     Dosage: 150 MG
     Route: 042
     Dates: start: 20241202, end: 20241202

REACTIONS (12)
  - Relapsing multiple sclerosis [Unknown]
  - Depression [Unknown]
  - Somnolence [Unknown]
  - White blood cell count increased [Unknown]
  - Infusion related reaction [Unknown]
  - Dysuria [Unknown]
  - Migraine [Unknown]
  - Pain [Unknown]
  - Fatigue [Unknown]
  - Abdominal discomfort [Unknown]
  - Headache [Unknown]
  - Product use in unapproved indication [Unknown]

NARRATIVE: CASE EVENT DATE: 20241223
